FAERS Safety Report 9785804 (Version 1)
Quarter: 2013Q4

REPORT INFORMATION
  Report Type: Spontaneous
  Country: CL (occurrence: CL)
  Receive Date: 20131227
  Receipt Date: 20131227
  Transmission Date: 20140711
  Serious: Yes (Other)
  Sender: FDA-Public Use
  Company Number: CL-PFIZER INC-2013366161

PATIENT
  Age: 83 Year
  Sex: Female

DRUGS (4)
  1. XALATAN [Suspect]
     Dosage: 1 DF, 1X/DAY
     Dates: start: 2007, end: 201309
  2. EXFORGE [Concomitant]
     Dosage: UNK
  3. QUETIAPINE [Concomitant]
     Dosage: UNK
  4. GLAFORNIL [Concomitant]
     Dosage: UNK

REACTIONS (4)
  - Cardiac disorder [Unknown]
  - Pelvic fracture [Unknown]
  - Bedridden [Not Recovered/Not Resolved]
  - Depression [Not Recovered/Not Resolved]
